FAERS Safety Report 8258921-8 (Version None)
Quarter: 2012Q2

REPORT INFORMATION
  Report Type: 
  Country: None (occurrence: None)
  Receive Date: 20120404
  Receipt Date: 20120326
  Transmission Date: 20120825
  Serious: Yes (Other)
  Sender: FDA-Public Use
  Company Number: US-ELI_LILLY_AND_COMPANY-US201106001257

PATIENT
  Sex: Female

DRUGS (7)
  1. FORTEO [Suspect]
     Dosage: 20 UG, QD
     Route: 065
  2. D3 [Concomitant]
  3. FORTEO [Suspect]
     Indication: OSTEOPOROSIS
     Dosage: 20 UG, QD
     Route: 065
     Dates: start: 20110301
  4. LIVALO [Concomitant]
  5. VITAMIN K TAB [Concomitant]
  6. FORTEO [Suspect]
     Dosage: 20 UG, QD
     Route: 065
  7. FORTEO [Suspect]
     Dosage: 20 UG, QD

REACTIONS (9)
  - BASAL CELL CARCINOMA [None]
  - ONYCHOMADESIS [None]
  - NAIL PIGMENTATION [None]
  - NAIL DISORDER [None]
  - ONYCHOCLASIS [None]
  - ALOPECIA [None]
  - TREMOR [None]
  - MALIGNANT MELANOMA [None]
  - HAIR TEXTURE ABNORMAL [None]
